FAERS Safety Report 4418621-9 (Version None)
Quarter: 2004Q3

REPORT INFORMATION
  Report Type: 
  Country: None (occurrence: None)
  Receive Date: 20040809
  Receipt Date: 20031215
  Transmission Date: 20050211
  Serious: No
  Sender: FDA-Public Use
  Company Number: US-GLAXOSMITHKLINE-A0443209A

PATIENT
  Age: 50 Year
  Sex: Male

DRUGS (7)
  1. PAXIL [Suspect]
     Indication: DEPRESSION
     Dosage: 30MG PER DAY
     Route: 048
     Dates: start: 19950101, end: 20031205
  2. IMDUR [Concomitant]
  3. TOPROL-XL [Concomitant]
  4. NORVASC [Concomitant]
  5. ATARAX [Concomitant]
  6. LIPITOR [Concomitant]
  7. PRILOSEC [Concomitant]

REACTIONS (3)
  - CHILLS [None]
  - DIARRHOEA [None]
  - VOMITING [None]
